FAERS Safety Report 4089474 (Version 15)
Quarter: 2021Q4

REPORT INFORMATION
  Report Type: Spontaneous
  Country: IT (occurrence: IT)
  Receive Date: 20040217
  Receipt Date: 20211018
  Transmission Date: 20220303
  Serious: Yes (Life-Threatening, Hospitalization, Congenital Anomaly, Other)
  Sender: FDA-Public Use
  Company Number: PHBS2004IT01973

PATIENT
  Age: 33 Week
  Sex: Female
  Weight: 1.97 kg

DRUGS (5)
  1. DICLOFENAC [Suspect]
     Active Substance: DICLOFENAC
     Indication: Foetal exposure during pregnancy
     Dosage: MATERNAL DOSE: 75 MG, QD
     Route: 064
  2. ACETAMINOPHEN [Suspect]
     Active Substance: ACETAMINOPHEN
     Indication: Foetal exposure during pregnancy
     Dosage: MATERNAL DOSE: 9 G, QD,8-9 G QD
     Route: 064
  3. ACETAMINOPHEN [Suspect]
     Active Substance: ACETAMINOPHEN
     Dosage: MATERNAL DOSE: 2 G, QD,1-2 G PER DAY
     Route: 064
  4. NIMESULIDE [Suspect]
     Active Substance: NIMESULIDE
     Indication: Foetal exposure during pregnancy
     Dosage: MATERNAL DOSE: 200 MG, QD,100-200 MG, DAILY
     Route: 064
  5. NIMESULIDE [Suspect]
     Active Substance: NIMESULIDE
     Dosage: MATERNAL DOSE: 100 MG, QD
     Route: 064

REACTIONS (12)
  - Neonatal respiratory acidosis [Recovered/Resolved]
  - Neonatal respiratory distress syndrome [Recovered/Resolved]
  - Cyanosis neonatal [Recovered/Resolved]
  - Bradycardia neonatal [Recovered/Resolved]
  - Renal failure neonatal [Recovered/Resolved]
  - Ductus arteriosus stenosis foetal [Recovered/Resolved]
  - Premature baby [Unknown]
  - Foetal exposure during pregnancy [Unknown]
  - Emphysema [Unknown]
  - Low birth weight baby [Unknown]
  - Polyuria [Unknown]
  - Blood creatinine increased [Recovered/Resolved]
